FAERS Safety Report 12313447 (Version 2)
Quarter: 2016Q4

REPORT INFORMATION
  Report Type: Spontaneous
  Country: US (occurrence: US)
  Receive Date: 20160428
  Receipt Date: 20161021
  Transmission Date: 20170207
  Serious: Yes (Death, Other)
  Sender: FDA-Public Use
  Company Number: US-PURDUE-USA-2008-0031449

PATIENT
  Age: 28 Year
  Sex: Male

DRUGS (6)
  1. TEMAZEPAM. [Interacting]
     Active Substance: TEMAZEPAM
     Indication: PRODUCT USED FOR UNKNOWN INDICATION
     Route: 048
  2. HYDROCODONE [Interacting]
     Active Substance: HYDROCODONE
     Indication: PRODUCT USED FOR UNKNOWN INDICATION
     Route: 048
  3. DOXYLAMINE [Interacting]
     Active Substance: DOXYLAMINE
     Indication: PRODUCT USED FOR UNKNOWN INDICATION
     Route: 048
  4. DIAZEPAM. [Interacting]
     Active Substance: DIAZEPAM
     Indication: PRODUCT USED FOR UNKNOWN INDICATION
     Route: 048
  5. ALPRAZOLAM. [Interacting]
     Active Substance: ALPRAZOLAM
     Indication: PRODUCT USED FOR UNKNOWN INDICATION
     Route: 048
  6. OXYCODONE HYDROCHLORIDE. [Suspect]
     Active Substance: OXYCODONE HYDROCHLORIDE
     Indication: PRODUCT USED FOR UNKNOWN INDICATION
     Route: 048

REACTIONS (6)
  - Drug abuse [Fatal]
  - Unresponsive to stimuli [Fatal]
  - Brain stem syndrome [Fatal]
  - Dyspnoea [Fatal]
  - Drug dependence [Unknown]
  - Accidental overdose [Fatal]

NARRATIVE: CASE EVENT DATE: 20080122
